FAERS Safety Report 4721442-0 (Version None)
Quarter: 2005Q3

REPORT INFORMATION
  Report Type: 
  Country: None (occurrence: None)
  Receive Date: 20050721
  Receipt Date: 20040909
  Transmission Date: 20060218
  Serious: Yes (Hospitalization)
  Sender: FDA-Public Use
  Company Number: US-BRISTOL-MYERS SQUIBB COMPANY-12697033

PATIENT
  Age: 48 Year
  Sex: Male
  Weight: 153 kg

DRUGS (14)
  1. COUMADIN [Suspect]
     Indication: MYOCARDIAL INFARCTION
     Dosage: BEGAN~2 YRS AGO AT 17.5MG,IN FEB-04 STOP FOR FEW DAYS,THEN 15MG QD,STOP ON 07-SEP-04
     Route: 048
     Dates: end: 20040907
  2. LASIX [Concomitant]
  3. RISPERDAL [Concomitant]
  4. LUVOX [Concomitant]
  5. ZESTRIL [Concomitant]
  6. LANOXIN [Concomitant]
  7. ELAVIL [Concomitant]
  8. AMBIEN [Concomitant]
     Dosage: ^2 TABS AT NIGHT^
  9. ALDACTONE [Concomitant]
  10. TOPROL-XL [Concomitant]
  11. TOPAMAX [Concomitant]
  12. RESTORIL [Concomitant]
  13. VISTARIL [Concomitant]
  14. VICODIN [Concomitant]

REACTIONS (4)
  - BACK PAIN [None]
  - INTERNATIONAL NORMALISED RATIO INCREASED [None]
  - MOUTH HAEMORRHAGE [None]
  - SWELLING [None]
